FAERS Safety Report 9143872 (Version 1)
Quarter: 2013Q1

REPORT INFORMATION
  Report Type: Spontaneous
  Country: BR (occurrence: BR)
  Receive Date: 20130306
  Receipt Date: 20130306
  Transmission Date: 20140127
  Serious: Yes (Hospitalization, Other)
  Sender: FDA-Public Use
  Company Number: PHHY2013BR020633

PATIENT
  Age: 72 Year
  Sex: Female

DRUGS (1)
  1. AMINOPHYLLINE [Suspect]
     Indication: ASTHMA
     Dosage: 0.2 MG, UNK
     Route: 048

REACTIONS (8)
  - Asthmatic crisis [Recovering/Resolving]
  - Dyspnoea [Not Recovered/Not Resolved]
  - Hyperventilation [Not Recovered/Not Resolved]
  - Drug dependence [Not Recovered/Not Resolved]
  - Hypertension [Recovering/Resolving]
  - Bladder obstruction [Not Recovered/Not Resolved]
  - Headache [Not Recovered/Not Resolved]
  - Abdominal pain upper [Not Recovered/Not Resolved]
